FAERS Safety Report 24746750 (Version 1)
Quarter: 2024Q4

REPORT INFORMATION
  Report Type: Spontaneous
  Country: GB (occurrence: GB)
  Receive Date: 20241218
  Receipt Date: 20241218
  Transmission Date: 20250115
  Serious: Yes (Death, Life-Threatening, Hospitalization)
  Sender: Steriscience PTE
  Company Number: None

PATIENT
  Age: 51 Year
  Sex: Female

DRUGS (5)
  1. MEROPENEM [Suspect]
     Active Substance: MEROPENEM
     Indication: Enterobacter bacteraemia
     Dosage: 1 GRAM, QD,TDS
     Route: 065
  2. MEROPENEM [Suspect]
     Active Substance: MEROPENEM
     Indication: Enterobacter infection
  3. FLUDARABINE [Suspect]
     Active Substance: FLUDARABINE PHOSPHATE
     Indication: Acute myeloid leukaemia
     Dosage: UNK
     Route: 065
     Dates: start: 202310
  4. CYTARABINE [Suspect]
     Active Substance: CYTARABINE
     Indication: Acute myeloid leukaemia
     Dosage: UNK
     Route: 065
     Dates: start: 202310
  5. IDARUBICIN [Suspect]
     Active Substance: IDARUBICIN
     Indication: Acute myeloid leukaemia
     Dosage: UNK
     Route: 065
     Dates: start: 202310

REACTIONS (15)
  - Fungal infection [Fatal]
  - Pulmonary haemorrhage [Fatal]
  - Pneumonia [Fatal]
  - Tracheal injury [Fatal]
  - Pulmonary mass [Fatal]
  - Mediastinitis [Fatal]
  - Emphysema [Fatal]
  - Cardiac arrest [Unknown]
  - Enterococcal bacteraemia [Unknown]
  - Staphylococcal bacteraemia [Unknown]
  - Arterial perforation [Unknown]
  - Tracheal ulcer [Unknown]
  - Neutropenic sepsis [Unknown]
  - Enterobacter bacteraemia [Unknown]
  - Enterobacter infection [Unknown]

NARRATIVE: CASE EVENT DATE: 20230101
